FAERS Safety Report 5484085-X (Version None)
Quarter: 2007Q4

REPORT INFORMATION
  Report Type: 
  Country: None (occurrence: None)
  Receive Date: 20071012
  Receipt Date: 20071001
  Transmission Date: 20080405
  Serious: Yes (Other)
  Sender: FDA-Public Use
  Company Number: GB-KINGPHARMUSA00001-K200701288

PATIENT

DRUGS (1)
  1. CHLOROMYCETIN OPHTHALMIC OINTMENT [Suspect]
     Indication: EYELID OPERATION
     Dosage: UNK, TID
     Route: 047

REACTIONS (13)
  - ACHROMOTRICHIA ACQUIRED [None]
  - CONJUNCTIVAL DISORDER [None]
  - CONJUNCTIVAL HYPERAEMIA [None]
  - CONJUNCTIVITIS ALLERGIC [None]
  - ERYTHEMA OF EYELID [None]
  - EYE IRRITATION [None]
  - EYELID OEDEMA [None]
  - INTRAOCULAR PRESSURE INCREASED [None]
  - IRIDOCYCLITIS [None]
  - LACRIMATION INCREASED [None]
  - SKIN HYPOPIGMENTATION [None]
  - VISUAL ACUITY REDUCED [None]
  - VITILIGO [None]
